FAERS Safety Report 7304023-4 (Version None)
Quarter: 2011Q1

REPORT INFORMATION
  Report Type: 
  Country: None (occurrence: None)
  Receive Date: 20110221
  Receipt Date: 20110210
  Transmission Date: 20110831
  Serious: Yes (Other)
  Sender: FDA-Public Use
  Company Number: US-ASTRAZENECA-2011SE07950

PATIENT
  Age: 86 Year
  Sex: Male
  Weight: 64.4 kg

DRUGS (4)
  1. EXELON [Concomitant]
     Indication: MEMORY IMPAIRMENT
  2. SEROQUEL XR [Suspect]
     Indication: AFFECTIVE DISORDER
     Route: 048
     Dates: start: 20100101
  3. NAMENDA [Concomitant]
     Indication: MEMORY IMPAIRMENT
  4. SEROQUEL XR [Suspect]
     Indication: DEMENTIA
     Route: 048
     Dates: start: 20100101

REACTIONS (1)
  - PROSTATE CANCER [None]
